FAERS Safety Report 23982699 (Version 1)
Quarter: 2024Q2

REPORT INFORMATION
  Report Type: Report from Study
  Country: US (occurrence: US)
  Receive Date: 20240617
  Receipt Date: 20240617
  Transmission Date: 20240716
  Serious: No
  Sender: FDA-Public Use
  Company Number: US-AstraZeneca-CH-00644421A

PATIENT
  Sex: Female

DRUGS (1)
  1. STRENSIQ [Suspect]
     Active Substance: ASFOTASE ALFA
     Indication: Hypophosphatasia
     Dosage: UNK
     Route: 065

REACTIONS (7)
  - Therapeutic response shortened [Unknown]
  - Gait disturbance [Unknown]
  - Asthenia [Unknown]
  - Fatigue [Unknown]
  - Muscle spasms [Unknown]
  - Muscle fatigue [Unknown]
  - Insurance issue [Unknown]
